FAERS Safety Report 13517550 (Version 2)
Quarter: 2017Q2

REPORT INFORMATION
  Report Type: Report from Study
  Country: US (occurrence: US)
  Receive Date: 20170505
  Receipt Date: 20170516
  Transmission Date: 20170830
  Serious: Yes (Hospitalization)
  Sender: FDA-Public Use
  Company Number: US-GILEAD-2017-0256722

PATIENT
  Age: 42 Year
  Sex: Female

DRUGS (4)
  1. TYVASO [Concomitant]
     Active Substance: TREPROSTINIL
  2. AMBRISENTAN [Suspect]
     Active Substance: AMBRISENTAN
     Indication: MIXED CONNECTIVE TISSUE DISEASE
  3. AMBRISENTAN [Suspect]
     Active Substance: AMBRISENTAN
     Indication: PULMONARY HYPERTENSION
     Dosage: 5 MG, QD
     Route: 065
     Dates: start: 20110729
  4. ADCIRCA [Concomitant]
     Active Substance: TADALAFIL

REACTIONS (5)
  - Tympanic membrane perforation [Recovered/Resolved]
  - Unevaluable event [Unknown]
  - Migraine [Recovered/Resolved]
  - Influenza [Recovered/Resolved]
  - Otorrhoea [Unknown]
